FAERS Safety Report 5418113-4 (Version None)
Quarter: 2007Q3

REPORT INFORMATION
  Report Type: 
  Country: None (occurrence: None)
  Receive Date: 20070817
  Receipt Date: 20070813
  Transmission Date: 20080115
  Serious: Yes (Death)
  Sender: FDA-Public Use
  Company Number: NZ-AVENTIS-200716900GDDC

PATIENT
  Age: 15 Year
  Sex: Male

DRUGS (1)
  1. LANTUS [Suspect]
     Route: 058
     Dates: start: 20070601, end: 20070701

REACTIONS (2)
  - HYPOGLYCAEMIA [None]
  - SUDDEN DEATH [None]
